FAERS Safety Report 13172671 (Version 1)
Quarter: 2017Q1

REPORT INFORMATION
  Report Type: Spontaneous
  Country: US (occurrence: US)
  Receive Date: 20170201
  Receipt Date: 20170201
  Transmission Date: 20170428
  Serious: Yes (Hospitalization, Other)
  Sender: FDA-Public Use
  Company Number: US-GLAXOSMITHKLINE-US2017012173

PATIENT
  Sex: Female

DRUGS (10)
  1. LISINOPRIL. [Concomitant]
     Active Substance: LISINOPRIL
  2. PROTONEX [Concomitant]
  3. VENTOLIN HFA [Suspect]
     Active Substance: ALBUTEROL SULFATE
     Indication: DYSPNOEA EXERTIONAL
     Dosage: UNK UNK, PRN
     Route: 055
  4. ADVAIR DISKUS [Suspect]
     Active Substance: FLUTICASONE PROPIONATE\SALMETEROL XINAFOATE
     Indication: DYSPNOEA
     Dosage: 1 PUFF(S), BID
     Route: 055
  5. SAVAYSA [Suspect]
     Active Substance: EDOXABAN TOSYLATE
     Indication: PRODUCT USED FOR UNKNOWN INDICATION
     Dosage: UNK
  6. ATORVASTATIN [Concomitant]
     Active Substance: ATORVASTATIN
  7. TRAMADOL. [Concomitant]
     Active Substance: TRAMADOL
  8. SYNTHROID [Concomitant]
     Active Substance: LEVOTHYROXINE SODIUM
  9. XARELTO [Suspect]
     Active Substance: RIVAROXABAN
     Indication: PRODUCT USED FOR UNKNOWN INDICATION
     Dosage: 20 MG, UNK
     Route: 048
     Dates: start: 2016, end: 2016
  10. FUROSEMIDE. [Concomitant]
     Active Substance: FUROSEMIDE

REACTIONS (11)
  - Rash [Unknown]
  - Pruritus [Recovered/Resolved]
  - Cardioversion [Unknown]
  - Urticaria [Recovered/Resolved]
  - Atrial fibrillation [Unknown]
  - Bronchitis [Unknown]
  - Intentional product misuse [Unknown]
  - Heart rate increased [Unknown]
  - Lower respiratory tract congestion [Unknown]
  - Expired product administered [Unknown]
  - Pneumonia [Unknown]

NARRATIVE: CASE EVENT DATE: 2016
